FAERS Safety Report 23942131 (Version 1)
Quarter: 2024Q2

REPORT INFORMATION
  Report Type: Report from Study
  Country: DO (occurrence: DO)
  Receive Date: 20240605
  Receipt Date: 20240605
  Transmission Date: 20240716
  Serious: Yes (Other)
  Sender: FDA-Public Use
  Company Number: DO-002147023-NVSC2024DO117537

PATIENT
  Sex: Female

DRUGS (1)
  1. KISQALI [Suspect]
     Active Substance: RIBOCICLIB
     Indication: Breast cancer
     Dosage: 600 MG, QD (1)
     Route: 048
     Dates: start: 20220420

REACTIONS (4)
  - Asphyxia [Unknown]
  - Decreased appetite [Unknown]
  - Pain in extremity [Unknown]
  - Vomiting [Unknown]
